FAERS Safety Report 8970891 (Version 2)
Quarter: 2013Q1

REPORT INFORMATION
  Report Type: Report from Study
  Country: US (occurrence: US)
  Receive Date: 20121218
  Receipt Date: 20130103
  Transmission Date: 20140127
  Serious: Yes (Hospitalization)
  Sender: FDA-Public Use
  Company Number: US-ACTELION-A-NJ2012-76198

PATIENT
  Age: 78 Year
  Sex: Female

DRUGS (1)
  1. TRACLEER [Suspect]
     Indication: PULMONARY ARTERIAL HYPERTENSION
     Dosage: UNK
     Route: 048

REACTIONS (5)
  - Ulcer haemorrhage [Recovering/Resolving]
  - Vomiting [Recovering/Resolving]
  - Diarrhoea [Recovering/Resolving]
  - Blood count abnormal [Recovering/Resolving]
  - Transfusion [Recovering/Resolving]
